FAERS Safety Report 6443329-8 (Version None)
Quarter: 2009Q4

REPORT INFORMATION
  Report Type: 
  Country: None (occurrence: None)
  Receive Date: 20091113
  Receipt Date: 20091104
  Transmission Date: 20100525
  Serious: Yes (Death, Hospitalization)
  Sender: FDA-Public Use
  Company Number: 2009AC000354

PATIENT
  Age: 85 Year
  Sex: Male

DRUGS (11)
  1. DIGOXIN [Suspect]
     Dosage: 0.125 MG QD PO
     Route: 048
  2. COUMADIN [Concomitant]
  3. VITAMIN K TAB [Concomitant]
  4. BETAPACE [Concomitant]
  5. LASIX [Concomitant]
  6. CARDIZEM [Concomitant]
  7. DETROL [Concomitant]
  8. FLOMAX [Concomitant]
  9. ASPIRIN [Concomitant]
  10. CARTIA XT [Concomitant]
  11. ALTACE [Concomitant]

REACTIONS (17)
  - ARRHYTHMIA [None]
  - ATRIAL FIBRILLATION [None]
  - BENIGN PROSTATIC HYPERPLASIA [None]
  - CARDIAC FAILURE CONGESTIVE [None]
  - CORONARY ARTERY DISEASE [None]
  - DECREASED APPETITE [None]
  - ECONOMIC PROBLEM [None]
  - FATIGUE [None]
  - HAEMATURIA [None]
  - HALLUCINATION [None]
  - HYPERTENSION [None]
  - INJURY [None]
  - INTERNATIONAL NORMALISED RATIO INCREASED [None]
  - PSYCHOSEXUAL DISORDER [None]
  - SURGERY [None]
  - URINARY RETENTION [None]
  - WEIGHT DECREASED [None]
